FAERS Safety Report 6678899-8 (Version None)
Quarter: 2010Q2

REPORT INFORMATION
  Report Type: 
  Country: None (occurrence: None)
  Receive Date: 20100412
  Receipt Date: 20100412
  Transmission Date: 20101027
  Serious: No
  Sender: FDA-Public Use
  Company Number: None

PATIENT
  Age: 6 Year
  Sex: Female
  Weight: 17.6903 kg

DRUGS (1)
  1. ADVAIR HFA [Suspect]
     Indication: ASTHMA
     Dosage: 2 PUFFS EVERY 12HOURS INHAL
     Route: 055
     Dates: start: 20100329, end: 20100406

REACTIONS (2)
  - BACK PAIN [None]
  - NECK PAIN [None]
